FAERS Safety Report 11140582 (Version 1)
Quarter: 2015Q2

REPORT INFORMATION
  Report Type: Spontaneous
  Country: US (occurrence: US)
  Receive Date: 20150525
  Receipt Date: 20150525
  Transmission Date: 20150821
  Serious: Yes (Other)
  Sender: FDA-Public Use
  Company Number: US-JNJFOC-20140815601

PATIENT
  Sex: Male
  Weight: 86.18 kg

DRUGS (1)
  1. RISPERIDONE. [Suspect]
     Active Substance: RISPERIDONE
     Indication: ANTISOCIAL PERSONALITY DISORDER
     Route: 048
     Dates: start: 2008

REACTIONS (6)
  - Product use issue [Unknown]
  - Weight increased [Recovering/Resolving]
  - Gynaecomastia [Unknown]
  - Weight decreased [Not Recovered/Not Resolved]
  - Seizure [Recovering/Resolving]
  - Drug dose omission [Unknown]

NARRATIVE: CASE EVENT DATE: 2008
